FAERS Safety Report 6940865-2 (Version None)
Quarter: 2010Q3

REPORT INFORMATION
  Report Type: 
  Country: None (occurrence: None)
  Receive Date: 20100825
  Receipt Date: 20100816
  Transmission Date: 20110219
  Serious: Yes (Hospitalization)
  Sender: FDA-Public Use
  Company Number: ES-MERCK-1008USA02000

PATIENT
  Age: 90 Year
  Sex: Female

DRUGS (6)
  1. MODURETIC 5-50 [Suspect]
     Indication: HYPERTENSION
     Route: 048
     Dates: start: 20100501, end: 20100802
  2. VASOTEC [Suspect]
     Indication: HYPERTENSION
     Route: 048
     Dates: start: 20090101
  3. VOLTAREN [Concomitant]
     Indication: SYMPATHETIC NERVE INJURY
     Route: 065
     Dates: start: 20100701
  4. DOGMATIL [Concomitant]
     Indication: VERTIGO
     Route: 065
     Dates: start: 20100701
  5. OMEPRAZOLE [Concomitant]
     Route: 048
     Dates: start: 20090101
  6. ALITRAQ [Concomitant]
     Indication: WEIGHT LOSS DIET
     Route: 065

REACTIONS (2)
  - DRUG INTERACTION [None]
  - HYPERKALAEMIA [None]
